FAERS Safety Report 25224366 (Version 1)
Quarter: 2025Q2

REPORT INFORMATION
  Report Type: Spontaneous
  Country: US (occurrence: None)
  Receive Date: 20250421
  Receipt Date: 20250421
  Transmission Date: 20250717
  Serious: Yes (Hospitalization)
  Sender: FDA-CTU
  Company Number: None

PATIENT
  Age: 49 Year
  Sex: Female
  Weight: 80.55 kg

DRUGS (1)
  1. MISOPROSTOL [Suspect]
     Active Substance: MISOPROSTOL
     Indication: Preoperative care
     Dosage: OTHER QUANTITY : 2 TABLET(S);?FREQUENCY : AT BEDTIME;?OTHER ROUTE : IN CHEEK (DISSOLVE);?
     Route: 050
     Dates: start: 20250415, end: 20250415

REACTIONS (2)
  - Atrial fibrillation [None]
  - Wrong technique in device usage process [None]

NARRATIVE: CASE EVENT DATE: 20250415
